FAERS Safety Report 9285847 (Version 2)
Quarter: 2013Q3

REPORT INFORMATION
  Report Type: Spontaneous
  Country: FR (occurrence: FR)
  Receive Date: 20130513
  Receipt Date: 20130821
  Transmission Date: 20140515
  Serious: Yes (Other)
  Sender: FDA-Public Use
  Company Number: FR-PFIZER INC-2013141936

PATIENT
  Age: 68 Year
  Sex: Female

DRUGS (13)
  1. NEURONTIN [Suspect]
     Dosage: 300 MG, 3X/DAY
     Route: 048
  2. LAROXYL [Suspect]
     Dosage: 15 DROPS A DAY
     Route: 048
     Dates: end: 201211
  3. ACTISKENAN [Suspect]
     Dosage: 10 MG DAILY
     Route: 048
     Dates: end: 201211
  4. IMOVANE [Suspect]
     Dosage: 7.5 MG A DAY
     Route: 048
     Dates: end: 201211
  5. BACTRIM [Concomitant]
     Dosage: 800 MG, 3X/DAY
     Route: 048
     Dates: start: 20121005, end: 20121026
  6. TARGOCID [Concomitant]
     Dosage: 600 MG A DAY
     Route: 058
     Dates: start: 20121005, end: 20121026
  7. KARDEGIC [Concomitant]
     Dosage: 75 MG A DAY
  8. AXEPIM [Concomitant]
     Dosage: UNK
     Dates: start: 20120926, end: 20121026
  9. LEVOTHYROX [Concomitant]
     Dosage: 75 ?G A DAY
  10. INEXIUM [Concomitant]
     Dosage: 40 MG A DAY
  11. ATENOLOL [Concomitant]
     Dosage: 50 MG A DAY
  12. DOLIPRANE [Concomitant]
     Dosage: 1 G, 4X/DAY
  13. CALCIPARIN [Concomitant]
     Dosage: 0.2 ML, 2X/DAY

REACTIONS (4)
  - Overdose [Recovered/Resolved]
  - Confusional state [Recovered/Resolved]
  - Renal failure acute [Unknown]
  - Renal tubular necrosis [Unknown]
